FAERS Safety Report 17911957 (Version 1)
Quarter: 2020Q2

REPORT INFORMATION
  Report Type: Spontaneous
  Country: US (occurrence: US)
  Receive Date: 20200618
  Receipt Date: 20200618
  Transmission Date: 20200714
  Serious: Yes (Death)
  Sender: FDA-Public Use
  Company Number: US-TEVA-2020-US-1788176

PATIENT
  Age: 34 Year
  Sex: Female

DRUGS (3)
  1. CARISOPRODOL. [Suspect]
     Active Substance: CARISOPRODOL
     Route: 065
  2. DIAZEPAM. [Suspect]
     Active Substance: DIAZEPAM
     Route: 065
  3. HYDROCODONE [Suspect]
     Active Substance: HYDROCODONE
     Route: 065

REACTIONS (2)
  - Product administration error [Unknown]
  - Death [Fatal]
